FAERS Safety Report 21522967 (Version 1)
Quarter: 2022Q4

REPORT INFORMATION
  Report Type: Spontaneous
  Country: US (occurrence: US)
  Receive Date: 20221029
  Receipt Date: 20221029
  Transmission Date: 20230113
  Serious: Yes (Death, Hospitalization)
  Sender: FDA-Public Use
  Company Number: US-AMNEAL PHARMACEUTICALS-2022-AMRX-03014

PATIENT
  Sex: Male

DRUGS (1)
  1. RYTARY [Suspect]
     Active Substance: CARBIDOPA\LEVODOPA
     Indication: Parkinson^s disease
     Dosage: 3 CAPSULES, QID
     Route: 048
     Dates: start: 20210115, end: 20220911

REACTIONS (5)
  - Bone marrow failure [Fatal]
  - Cerebrovascular accident [Fatal]
  - COVID-19 [Fatal]
  - Disease progression [Fatal]
  - Hypertension [Unknown]
